FAERS Safety Report 7580476-1 (Version None)
Quarter: 2011Q2

REPORT INFORMATION
  Report Type: 
  Country: None (occurrence: None)
  Receive Date: 20110629
  Receipt Date: 20110608
  Transmission Date: 20111010
  Serious: Yes (Death, Hospitalization, Congenital Anomaly)
  Sender: FDA-Public Use
  Company Number: A0924285A

PATIENT
  Sex: Female

DRUGS (6)
  1. FOLIC ACID [Concomitant]
     Route: 064
  2. TYLENOL-500 [Concomitant]
     Route: 064
  3. ZOFRAN [Concomitant]
     Route: 064
  4. PAXIL [Suspect]
     Indication: DEPRESSION
     Route: 064
     Dates: start: 20021101, end: 20030124
  5. PHENERGAN HCL [Concomitant]
     Route: 064
  6. PRENATAL VITAMINS [Concomitant]
     Route: 064

REACTIONS (14)
  - CARDIO-RESPIRATORY ARREST [None]
  - HYPOPLASTIC LEFT HEART SYNDROME [None]
  - SUBVALVULAR AORTIC STENOSIS [None]
  - DRUG EXPOSURE DURING PREGNANCY [None]
  - COARCTATION OF THE AORTA [None]
  - CONGENITAL AORTIC STENOSIS [None]
  - CARDIAC FAILURE CONGESTIVE [None]
  - ATRIAL SEPTAL DEFECT [None]
  - CONGENITAL MITRAL VALVE STENOSIS [None]
  - PULMONARY HYPERTENSION [None]
  - BICUSPID AORTIC VALVE [None]
  - STEAL SYNDROME [None]
  - CARDIOMYOPATHY [None]
  - SHONE COMPLEX [None]
